FAERS Safety Report 20297413 (Version 1)
Quarter: 2022Q1

REPORT INFORMATION
  Report Type: Spontaneous
  Country: US (occurrence: US)
  Receive Date: 20220105
  Receipt Date: 20220105
  Transmission Date: 20220423
  Serious: Yes (Other)
  Sender: FDA-Public Use
  Company Number: US-PDX-000005

PATIENT

DRUGS (2)
  1. ENTECAVIR [Suspect]
     Active Substance: ENTECAVIR
     Indication: HIV infection
     Route: 065
  2. ENTECAVIR [Suspect]
     Active Substance: ENTECAVIR
     Indication: HIV infection
     Route: 065
     Dates: start: 2020

REACTIONS (5)
  - Diarrhoea [Unknown]
  - Mucous stools [Unknown]
  - Restlessness [Unknown]
  - Fatigue [Unknown]
  - Product use in unapproved indication [Unknown]
